FAERS Safety Report 20937911 (Version 1)
Quarter: 2022Q2

REPORT INFORMATION
  Report Type: Spontaneous
  Country: US (occurrence: None)
  Receive Date: 20220608
  Receipt Date: 20220608
  Transmission Date: 20220721
  Serious: No
  Sender: FDA-Public Use
  Company Number: None

PATIENT
  Sex: Male
  Weight: 80.74 kg

DRUGS (20)
  1. ABIRATERONE [Suspect]
     Active Substance: ABIRATERONE
     Indication: Prostate cancer
     Dosage: FREQUENCY : DAILY;?
     Route: 048
  2. ALPHA LIPOIC ACID [Concomitant]
     Active Substance: .ALPHA.-LIPOIC ACID
  3. AMLODIPINE BESYLATE [Concomitant]
     Active Substance: AMLODIPINE BESYLATE
  4. Azihromycin [Concomitant]
  5. Bayer Aspirin EC Low [Concomitant]
  6. Cefuroxime Axatil [Concomitant]
  7. MULTIPLE VITAMINS [Concomitant]
  8. FAMOTIDINE [Concomitant]
  9. FENOPROFEN CALCIUM [Concomitant]
     Active Substance: FENOPROFEN CALCIUM
  10. FERROUS SULFATE [Concomitant]
     Active Substance: FERROUS SULFATE
  11. FIRMAGON [Concomitant]
     Active Substance: DEGARELIX ACETATE
  12. LISINOPRIL [Concomitant]
     Active Substance: LISINOPRIL
  13. HUMALOG [Concomitant]
     Active Substance: INSULIN LISPRO
  14. METOPROLOL TARTRATE [Concomitant]
     Active Substance: METOPROLOL TARTRATE
  15. NOVOLIN N [Concomitant]
     Active Substance: INSULIN HUMAN
  16. OXYCODONE HYDROCHLORIDE [Concomitant]
     Active Substance: OXYCODONE HYDROCHLORIDE
  17. PREDNISONE [Concomitant]
     Active Substance: PREDNISONE
  18. SIMVASTATIN [Concomitant]
     Active Substance: SIMVASTATIN
  19. SYMBICORT [Concomitant]
  20. VITAMIN D3 [Concomitant]
     Active Substance: CHOLECALCIFEROL

REACTIONS (2)
  - Hyperglycaemia [None]
  - Central venous catheterisation [None]
